FAERS Safety Report 23470028 (Version 1)
Quarter: 2024Q1

REPORT INFORMATION
  Report Type: Spontaneous
  Country: US (occurrence: US)
  Receive Date: 20240202
  Receipt Date: 20240202
  Transmission Date: 20240410
  Serious: Yes (Life-Threatening, Other)
  Sender: FDA-Public Use
  Company Number: US-AstraZeneca-2024A017385

PATIENT

DRUGS (3)
  1. BUDESONIDE [Suspect]
     Active Substance: BUDESONIDE
     Route: 055
  2. BREO ELLIPTA [Suspect]
     Active Substance: FLUTICASONE FUROATE\VILANTEROL TRIFENATATE
  3. PREDNISONE [Suspect]
     Active Substance: PREDNISONE

REACTIONS (15)
  - Choking [Unknown]
  - Gait disturbance [Unknown]
  - Monoplegia [Unknown]
  - Helicobacter infection [Unknown]
  - Pain [Unknown]
  - Vitamin D decreased [Unknown]
  - Autoimmune thyroiditis [Unknown]
  - Upper respiratory tract infection [Unknown]
  - Asthma [Unknown]
  - Insomnia [Unknown]
  - Dyspnoea [Unknown]
  - Swollen tongue [Unknown]
  - Drug hypersensitivity [Unknown]
  - Anxiety [Unknown]
  - Tongue haemorrhage [Unknown]
